FAERS Safety Report 6056067-0 (Version None)
Quarter: 2009Q1

REPORT INFORMATION
  Report Type: 
  Country: None (occurrence: None)
  Receive Date: 20090128
  Receipt Date: 20090120
  Transmission Date: 20090719
  Serious: Yes (Death)
  Sender: FDA-Public Use
  Company Number: AU-WATSON-2009-00298

PATIENT
  Age: 39 Year
  Sex: Male

DRUGS (4)
  1. PREDNISOLONE ACETATE [Suspect]
     Indication: CROHN'S DISEASE
     Dosage: UNK
     Dates: start: 19930101
  2. AZATHIOPRINE [Suspect]
     Indication: CROHN'S DISEASE
     Dosage: UNK
     Dates: start: 19990801
  3. AZATHIOPRINE [Suspect]
     Dosage: 2 - 2.5 MG/KG, UNK
     Dates: start: 19930101, end: 19940101
  4. INFLIXIMAB [Suspect]
     Indication: CROHN'S DISEASE
     Dosage: 5 MG/KG, X 3 DOSES
     Dates: start: 19991101, end: 20000101

REACTIONS (1)
  - HEPATOSPLENIC T-CELL LYMPHOMA [None]
